FAERS Safety Report 16609228 (Version 2)
Quarter: 2019Q3

REPORT INFORMATION
  Report Type: Report from Study
  Country: US (occurrence: US)
  Receive Date: 20190722
  Receipt Date: 20190821
  Transmission Date: 20191004
  Serious: Yes (Other)
  Sender: FDA-Public Use
  Company Number: US-OTSUKA-2019_026180

PATIENT
  Age: 21 Year
  Sex: Female

DRUGS (11)
  1. LEXAPRO [Concomitant]
     Active Substance: ESCITALOPRAM OXALATE
     Indication: PRODUCT USED FOR UNKNOWN INDICATION
     Dosage: 7.5 MG, QD (1 AND HALF TABLET AT NIGHT)
     Route: 048
  2. PAMELOR [Concomitant]
     Active Substance: NORTRIPTYLINE HYDROCHLORIDE
     Indication: DEPRESSION
     Dosage: 20 MG, QD NIGHTLY
     Route: 048
     Dates: start: 20190124, end: 20190727
  3. SUMATRIPTAN. [Concomitant]
     Active Substance: SUMATRIPTAN
     Indication: PRODUCT USED FOR UNKNOWN INDICATION
     Dosage: 3 MG, AS NEEDED, NOT MORE THAN 3DAYS PER WEEK
     Route: 065
  4. TOLVAPTAN [Suspect]
     Active Substance: TOLVAPTAN
     Dosage: 15 MG, UNK
     Route: 065
     Dates: start: 201809
  5. MAXALT-MLT [Concomitant]
     Active Substance: RIZATRIPTAN BENZOATE
     Indication: MIGRAINE
     Dosage: 10 MG, AS NEEDED, NOT MORE THAN 3 DAYS PER WEEK
     Route: 048
     Dates: start: 20160412
  6. TOLVAPTAN [Suspect]
     Active Substance: TOLVAPTAN
     Indication: CONGENITAL CYSTIC KIDNEY DISEASE
     Dosage: 60 MG, QD (AM)
     Route: 048
     Dates: end: 20190419
  7. TOLVAPTAN [Suspect]
     Active Substance: TOLVAPTAN
     Dosage: 30 MG, QD (PM)
     Route: 048
     Dates: end: 20190419
  8. TYLENOL [Concomitant]
     Active Substance: ACETAMINOPHEN
     Indication: MYALGIA
     Dosage: 650 MG, EVERY THREE DAYS
     Route: 065
  9. TOLVAPTAN [Suspect]
     Active Substance: TOLVAPTAN
     Dosage: 45 MG, UNK
     Route: 065
     Dates: start: 201809
  10. PRAVASTATIN. [Suspect]
     Active Substance: PRAVASTATIN
     Indication: CONGENITAL CYSTIC KIDNEY DISEASE
     Dosage: 10 MG, UNK
     Route: 065
     Dates: start: 20160615, end: 20190509
  11. LISINOPRIL. [Concomitant]
     Active Substance: LISINOPRIL
     Indication: HYPERTENSION
     Dosage: 20 MG, QD
     Route: 048
     Dates: start: 20181126

REACTIONS (9)
  - Thirst [Unknown]
  - Aspartate aminotransferase increased [Not Recovered/Not Resolved]
  - Back pain [Unknown]
  - Alanine aminotransferase increased [Not Recovered/Not Resolved]
  - Scoliosis [Unknown]
  - Blood glucose fluctuation [Recovered/Resolved]
  - Feeling hot [Unknown]
  - Drug intolerance [Unknown]
  - Autoimmune hepatitis [Unknown]

NARRATIVE: CASE EVENT DATE: 20190416
